FAERS Safety Report 5099380-6 (Version None)
Quarter: 2006Q3

REPORT INFORMATION
  Report Type: 
  Country: None (occurrence: None)
  Receive Date: 20060731
  Receipt Date: 20060622
  Transmission Date: 20061208
  Serious: No
  Sender: FDA-Public Use
  Company Number: 2006PV016168

PATIENT
  Age: 57 Year
  Sex: Female
  Weight: 103.4201 kg

DRUGS (8)
  1. BYETTA [Suspect]
     Indication: DIABETES MELLITUS NON-INSULIN-DEPENDENT
     Dosage: SEE IMAGE
     Route: 058
     Dates: start: 20060201, end: 20060101
  2. BYETTA [Suspect]
     Indication: DIABETES MELLITUS NON-INSULIN-DEPENDENT
     Dosage: SEE IMAGE
     Route: 058
     Dates: end: 20060201
  3. BYETTA [Suspect]
     Indication: DIABETES MELLITUS NON-INSULIN-DEPENDENT
     Dosage: SEE IMAGE
     Route: 058
     Dates: start: 20060101, end: 20060614
  4. BYETTA [Suspect]
     Indication: DIABETES MELLITUS NON-INSULIN-DEPENDENT
     Dosage: SEE IMAGE
     Route: 058
     Dates: start: 20060615
  5. PRANDIN [Concomitant]
  6. AVANDIA [Concomitant]
  7. GLUCOPHAGE [Concomitant]
  8. GLUCOVANCE [Concomitant]

REACTIONS (4)
  - BLOOD GLUCOSE DECREASED [None]
  - IRRITABILITY [None]
  - NAUSEA [None]
  - VISUAL DISTURBANCE [None]
